FAERS Safety Report 7634177-1 (Version None)
Quarter: 2011Q3

REPORT INFORMATION
  Report Type: 
  Country: None (occurrence: None)
  Receive Date: 20110725
  Receipt Date: 20110715
  Transmission Date: 20111222
  Serious: Yes (Hospitalization, Other)
  Sender: FDA-Public Use
  Company Number: US-ASTRAZENECA-2011SE25878

PATIENT
  Age: 64 Year
  Sex: Male

DRUGS (2)
  1. ATACAND [Suspect]
     Route: 048
  2. CRESTOR [Suspect]
     Route: 048

REACTIONS (9)
  - MYOCARDIAL INFARCTION [None]
  - RETINOPEXY [None]
  - DRUG DOSE OMISSION [None]
  - CARDIAC OPERATION [None]
  - HYPERTENSION [None]
  - BLINDNESS [None]
  - RETINAL DETACHMENT [None]
  - CARDIAC DISORDER [None]
  - HYPERCHOLESTEROLAEMIA [None]
